FAERS Safety Report 7380479-6 (Version None)
Quarter: 2011Q1

REPORT INFORMATION
  Report Type: 
  Country: None (occurrence: None)
  Receive Date: 20110329
  Receipt Date: 20110318
  Transmission Date: 20110831
  Serious: Yes (Other)
  Sender: FDA-Public Use
  Company Number: BR-SANOFI-AVENTIS-2011SA016892

PATIENT
  Age: 65 Year
  Sex: Female
  Weight: 95 kg

DRUGS (9)
  1. GALVUS [Concomitant]
     Route: 048
  2. LANTUS [Suspect]
     Route: 058
  3. CYMBALTA [Concomitant]
     Indication: FIBROMYALGIA
     Route: 048
  4. LOSARTAN POTASSIUM [Concomitant]
     Route: 048
  5. ATORVASTATIN CALCIUM [Concomitant]
     Route: 048
  6. CILOSTAZOL [Concomitant]
     Route: 048
  7. NOVORAPID [Concomitant]
     Route: 058
  8. PURAN T4 [Concomitant]
     Route: 048
  9. PIOGLITAZONE [Concomitant]
     Route: 048

REACTIONS (7)
  - TREMOR [None]
  - CATARACT [None]
  - DIZZINESS [None]
  - EYE DISORDER [None]
  - HYPERHIDROSIS [None]
  - VISION BLURRED [None]
  - BLOOD GLUCOSE FLUCTUATION [None]
